FAERS Safety Report 5904901-4 (Version None)
Quarter: 2008Q4

REPORT INFORMATION
  Report Type: 
  Country: None (occurrence: None)
  Receive Date: 20081001
  Receipt Date: 20080924
  Transmission Date: 20090506
  Serious: Yes (Other)
  Sender: FDA-Public Use
  Company Number: B0538542A

PATIENT
  Age: 78 Year
  Sex: Female

DRUGS (2)
  1. LAMICTAL [Suspect]
     Indication: EPILEPSY
     Route: 065
     Dates: start: 19960101
  2. VALPROIC ACID [Suspect]
     Indication: EPILEPSY
     Route: 065
     Dates: start: 19960101

REACTIONS (3)
  - ACTIVITIES OF DAILY LIVING IMPAIRED [None]
  - DEMENTIA [None]
  - GENERAL PHYSICAL HEALTH DETERIORATION [None]
